FAERS Safety Report 9261833 (Version 2)
Quarter: 2013Q2

REPORT INFORMATION
  Report Type: Spontaneous
  Country: US (occurrence: US)
  Receive Date: 20130429
  Receipt Date: 20130607
  Transmission Date: 20140414
  Serious: Yes (Other)
  Sender: FDA-Public Use
  Company Number: US-B.I. PHARMACEUTICALS,INC./RIDGEFIELD-2013-BI-10581BP

PATIENT
  Age: 89 Year
  Sex: Female

DRUGS (1)
  1. DULCOLAX TABLETS [Suspect]

REACTIONS (1)
  - Malignant melanoma [Unknown]
